FAERS Safety Report 23047749 (Version 1)
Quarter: 2023Q4

REPORT INFORMATION
  Report Type: Report from Study
  Country: US (occurrence: US)
  Receive Date: 20231010
  Receipt Date: 20231010
  Transmission Date: 20240110
  Serious: Yes (Hospitalization, Other)
  Sender: FDA-Public Use
  Company Number: US-JAZZ PHARMACEUTICALS-2022-US-034507

PATIENT
  Sex: Female
  Weight: 61.224 kg

DRUGS (18)
  1. XYWAV [Suspect]
     Active Substance: CALCIUM OXYBATE\MAGNESIUM OXYBATE\POTASSIUM OXYBATE\SODIUM OXYBATE
     Indication: Narcolepsy
     Dosage: 5.25 GRAM, BID
  2. XYWAV [Suspect]
     Active Substance: CALCIUM OXYBATE\MAGNESIUM OXYBATE\POTASSIUM OXYBATE\SODIUM OXYBATE
     Indication: Cataplexy
  3. XYWAV [Suspect]
     Active Substance: CALCIUM OXYBATE\MAGNESIUM OXYBATE\POTASSIUM OXYBATE\SODIUM OXYBATE
     Indication: Somnolence
  4. LANTUS [Concomitant]
     Active Substance: INSULIN GLARGINE
     Dosage: 100 UNIT/ML VIAL
     Dates: start: 20140101
  5. CYANOCOBALAMIN [Concomitant]
     Active Substance: CYANOCOBALAMIN
     Dosage: 1,000 MCG/ML
     Dates: start: 20131220
  6. HUMALOG [Concomitant]
     Active Substance: INSULIN LISPRO
     Dosage: 100 UNITS/ML VIAL
     Dates: start: 20151112
  7. SECTRAL [Concomitant]
     Active Substance: ACEBUTOLOL HYDROCHLORIDE
     Dosage: 0000
     Dates: start: 20151112
  8. VITAMIN B12 [Concomitant]
     Active Substance: CYANOCOBALAMIN
     Dosage: 0000
     Dates: start: 20151112
  9. SUNOSI [Concomitant]
     Active Substance: SOLRIAMFETOL
     Dosage: 1 TABLET
     Route: 048
     Dates: start: 20191030
  10. HEMAX [ERYTHROPOIETIN] [Concomitant]
     Dosage: 0000
     Dates: start: 20190715
  11. FLUOXETINE HYDROCHLORIDE [Concomitant]
     Active Substance: FLUOXETINE HYDROCHLORIDE
     Dosage: 1 CAPSULE, EVERY DAY
     Route: 048
     Dates: start: 20210719
  12. ATENOLOL [Concomitant]
     Active Substance: ATENOLOL
     Dosage: 1 TABLET QD
     Route: 048
  13. NORGESTIMATE [Concomitant]
     Active Substance: NORGESTIMATE
  14. NP THYROID [Concomitant]
     Active Substance: LEVOTHYROXINE\LIOTHYRONINE
     Dosage: 1 TABLET EVERY DAY
     Route: 048
  15. TRI LO ESTARYLLA [Concomitant]
     Dosage: 1 TABLET QD
     Route: 048
  16. TRULANCE [Concomitant]
     Active Substance: PLECANATIDE
     Dosage: 1 TABLET, EVERY DAY
     Route: 048
  17. ELIQUIS [Concomitant]
     Active Substance: APIXABAN
     Dosage: UNK
     Dates: start: 20231007
  18. ELIQUIS [Concomitant]
     Active Substance: APIXABAN
     Dosage: 10 MG TABLET
     Dates: start: 20230928

REACTIONS (3)
  - Rhabdomyolysis [Unknown]
  - Irritable bowel syndrome [Unknown]
  - Off label use [Unknown]
